FAERS Safety Report 19323254 (Version 1)
Quarter: 2021Q2

REPORT INFORMATION
  Report Type: Spontaneous
  Country: CN (occurrence: CN)
  Receive Date: 20210528
  Receipt Date: 20210528
  Transmission Date: 20210717
  Serious: Yes (Hospitalization, Other)
  Sender: FDA-Public Use
  Company Number: CN-SA-2021SA176286

PATIENT
  Age: 49 Year
  Sex: Female

DRUGS (2)
  1. ACETYLSALICYLIC ACID [Suspect]
     Active Substance: ASPIRIN
     Indication: ACUTE MYOCARDIAL INFARCTION
  2. CLOPIDOGREL BISULFATE. [Suspect]
     Active Substance: CLOPIDOGREL BISULFATE
     Indication: ACUTE MYOCARDIAL INFARCTION

REACTIONS (8)
  - Vomiting [Recovered/Resolved]
  - Left ventricular enlargement [Recovered/Resolved]
  - Nausea [Recovered/Resolved]
  - Electrocardiogram ST segment depression [Recovered/Resolved]
  - Phaeochromocytoma [Recovered/Resolved]
  - Chest pain [Recovered/Resolved]
  - Adrenal mass [Recovered/Resolved]
  - Electrocardiogram QT prolonged [Recovered/Resolved]
